FAERS Safety Report 9205785 (Version 1)
Quarter: 2013Q2

REPORT INFORMATION
  Report Type: Spontaneous
  Country: FR (occurrence: None)
  Receive Date: 20130401
  Receipt Date: 20130401
  Transmission Date: 20140414
  Serious: Yes (Life-Threatening)
  Sender: FDA-Public Use
  Company Number: 2013FR0116

PATIENT
  Age: 67 Year
  Sex: Male

DRUGS (14)
  1. KINERET [Suspect]
     Indication: RHEUMATOID ARTHRITIS
     Dates: start: 201204, end: 201208
  2. APROVEL [Concomitant]
  3. CARDENSIEL [Concomitant]
  4. COVERSYL [Concomitant]
  5. CORTANCYL [Concomitant]
  6. SPIRIVA [Concomitant]
  7. JANUMET [Concomitant]
  8. TAHOR [Concomitant]
  9. KARDEGIC [Concomitant]
  10. PREVISCAN [Concomitant]
  11. PROCORALAN [Concomitant]
  12. LANGORAN [Concomitant]
  13. DAFALGAN CODEINE [Concomitant]
  14. TRAMADOL [Concomitant]

REACTIONS (1)
  - Lung neoplasm malignant [None]
